FAERS Safety Report 18604098 (Version 1)
Quarter: 2020Q4

REPORT INFORMATION
  Report Type: Spontaneous
  Country: US (occurrence: US)
  Receive Date: 20201211
  Receipt Date: 20201211
  Transmission Date: 20210114
  Serious: No
  Sender: FDA-Public Use
  Company Number: US-B.I. PHARMACEUTICALS,INC./RIDGEFIELD-2020-BI-068015

PATIENT
  Age: 80 Year
  Sex: Male

DRUGS (4)
  1. OFEV [Suspect]
     Active Substance: NINTEDANIB
     Dosage: 100MG TWICE DAILY
     Dates: start: 20200205
  2. OFEV [Suspect]
     Active Substance: NINTEDANIB
     Dosage: 150MG TWICE DAILY
     Dates: start: 20200124, end: 20200204
  3. OFEV [Suspect]
     Active Substance: NINTEDANIB
     Dosage: 100MG TWICE DAILY
     Dates: start: 20181228, end: 20200123
  4. OFEV [Suspect]
     Active Substance: NINTEDANIB
     Indication: IDIOPATHIC PULMONARY FIBROSIS
     Dosage: 150MG TWICE DAILY
     Dates: start: 20181126, end: 20181227

REACTIONS (1)
  - Haematochezia [Recovered/Resolved]

NARRATIVE: CASE EVENT DATE: 202005
